FAERS Safety Report 8505847-8 (Version None)
Quarter: 2012Q3

REPORT INFORMATION
  Report Type: 
  Country: None (occurrence: None)
  Receive Date: 20120712
  Receipt Date: 20120702
  Transmission Date: 20120928
  Serious: Yes (Hospitalization)
  Sender: FDA-Public Use
  Company Number: US-JNJFOC-20120702268

PATIENT
  Sex: Female
  Weight: 44.2 kg

DRUGS (16)
  1. MERCAPTOPURINE [Concomitant]
  2. TRAMDOL [Concomitant]
  3. HUMIRA [Concomitant]
  4. RANITIDINE [Concomitant]
  5. MULTI-VITAMINS [Concomitant]
  6. TRIMETHOBENZAMIDE HCL [Concomitant]
  7. DILAUDID [Concomitant]
  8. CALCIUM [Concomitant]
  9. INFLIXIMAB, RECOMBINANT [Suspect]
     Indication: CROHN'S DISEASE
     Route: 042
     Dates: start: 20100716, end: 20101021
  10. PROTONIX [Concomitant]
  11. NUBAIN [Concomitant]
  12. BUDESONIDE [Concomitant]
  13. ONDANSETRON [Concomitant]
  14. LANSOPRAZOLE [Concomitant]
  15. PEDIASURE [Concomitant]
  16. PREDNISONE [Concomitant]

REACTIONS (1)
  - CROHN'S DISEASE [None]
